FAERS Safety Report 10253390 (Version 2)
Quarter: 2014Q2

REPORT INFORMATION
  Report Type: Spontaneous
  Country: US (occurrence: US)
  Receive Date: 20140623
  Receipt Date: 20140623
  Transmission Date: 20141212
  Serious: No
  Sender: FDA-Public Use
  Company Number: US-SHIONOGI, INC-2014000399

PATIENT
  Age: 52 Year
  Sex: Female
  Weight: 73.02 kg

DRUGS (2)
  1. OSPHENA [Suspect]
     Indication: DYSPAREUNIA
     Dosage: 60 MG, EVERY NIGHT WITH FOOD
     Route: 048
     Dates: start: 20140423
  2. OSPHENA [Suspect]
     Indication: ATROPHIC VULVOVAGINITIS

REACTIONS (4)
  - Chest pain [Unknown]
  - Vaginal discharge [Unknown]
  - Muscle spasms [Unknown]
  - Hot flush [Unknown]
